FAERS Safety Report 8584025-0 (Version None)
Quarter: 2012Q3

REPORT INFORMATION
  Report Type: 
  Country: None (occurrence: None)
  Receive Date: 20120810
  Receipt Date: 20120725
  Transmission Date: 20120928
  Serious: No
  Sender: FDA-Public Use
  Company Number: US-009507513-1207USA008978

PATIENT

DRUGS (2)
  1. VYVANSE [Concomitant]
  2. NUVARING [Suspect]
     Indication: CONTRACEPTION
     Route: 067

REACTIONS (3)
  - DRUG INEFFECTIVE [None]
  - INCORRECT STORAGE OF DRUG [None]
  - MENSTRUAL DISORDER [None]
